FAERS Safety Report 10664397 (Version 1)
Quarter: 2014Q4

REPORT INFORMATION
  Report Type: Spontaneous
  Country: US (occurrence: None)
  Receive Date: 20141208
  Receipt Date: 20141208
  Transmission Date: 20150529
  Serious: Yes (Death)
  Sender: FDA-Public Use
  Company Number: 2014TUS008396

PATIENT
  Age: 26 Year
  Sex: Male
  Weight: 70.3 kg

DRUGS (5)
  1. CEPHALEXIN. [Concomitant]
     Active Substance: CEPHALEXIN
  2. CLONAZEPAM. [Concomitant]
     Active Substance: CLONAZEPAM
  3. BRINTELLIX [Suspect]
     Active Substance: VORTIOXETINE HYDROBROMIDE
     Indication: BIPOLAR DISORDER
     Route: 048
     Dates: start: 20140613, end: 20140730
  4. LAMOTRIGINE. [Concomitant]
     Active Substance: LAMOTRIGINE
  5. MELOXICAM. [Concomitant]
     Active Substance: MELOXICAM

REACTIONS (5)
  - Off label use [None]
  - Nausea [None]
  - Abscess [None]
  - Completed suicide [None]
  - Suicide attempt [None]

NARRATIVE: CASE EVENT DATE: 20140613
